FAERS Safety Report 21967605 (Version 1)
Quarter: 2023Q1

REPORT INFORMATION
  Report Type: Spontaneous
  Country: US (occurrence: None)
  Receive Date: 20230206
  Receipt Date: 20230206
  Transmission Date: 20230417
  Serious: Yes (Hospitalization, Other)
  Sender: FDA-Public Use
  Company Number: None

PATIENT
  Age: 72 Year
  Sex: Female

DRUGS (4)
  1. BETHANECHOL [Suspect]
     Active Substance: BETHANECHOL
     Indication: Bladder spasm
     Dosage: FREQUENCY : 3 TIMES A DAY;?
     Route: 048
     Dates: start: 20221209, end: 20221213
  2. HYDROCHLOROTHIAZIDE [Concomitant]
     Active Substance: HYDROCHLOROTHIAZIDE
  3. LISINOPRIL [Concomitant]
     Active Substance: LISINOPRIL
  4. OXYCODONE [Concomitant]
     Active Substance: OXYCODONE

REACTIONS (6)
  - Orthostatic hypotension [None]
  - Bacteraemia [None]
  - Colitis ischaemic [None]
  - Contraindicated product prescribed [None]
  - Contraindicated product administered [None]
  - Nausea [None]

NARRATIVE: CASE EVENT DATE: 20221209
